FAERS Safety Report 21586266 (Version 1)
Quarter: 2022Q4

REPORT INFORMATION
  Report Type: Other
  Country: FR (occurrence: FR)
  Receive Date: 20221112
  Receipt Date: 20221112
  Transmission Date: 20230113
  Serious: Yes (Hospitalization)
  Sender: FDA-Public Use
  Company Number: None

PATIENT

DRUGS (3)
  1. SERTRALINE [Suspect]
     Active Substance: SERTRALINE HYDROCHLORIDE
     Indication: Poisoning deliberate
     Dosage: 700MG
     Route: 048
     Dates: start: 20220222, end: 20220222
  2. ACETAMINOPHEN [Suspect]
     Active Substance: ACETAMINOPHEN
     Indication: Poisoning deliberate
     Dosage: 20 GRAM, 1 TOTAL
     Route: 048
     Dates: start: 20220222, end: 20220222
  3. PRAZEPAM [Suspect]
     Active Substance: PRAZEPAM
     Indication: Poisoning deliberate
     Dosage: 800 MILLIGRAM, 1 TOTAL
     Route: 048
     Dates: start: 20220222, end: 20220222

REACTIONS (4)
  - Prothrombin time ratio decreased [Recovering/Resolving]
  - Altered state of consciousness [Recovered/Resolved]
  - Toxicity to various agents [Recovered/Resolved]
  - Vomiting [Recovered/Resolved]

NARRATIVE: CASE EVENT DATE: 20220222
